FAERS Safety Report 5291753-1 (Version None)
Quarter: 2007Q2

REPORT INFORMATION
  Report Type: 
  Country: None (occurrence: None)
  Receive Date: 20070410
  Receipt Date: 20070402
  Transmission Date: 20071010
  Serious: Yes (Hospitalization)
  Sender: FDA-Public Use
  Company Number: US-RB-005772-07

PATIENT
  Sex: Female
  Weight: 84.15 kg

DRUGS (16)
  1. SUBOXONE [Suspect]
     Route: 060
     Dates: start: 20070317, end: 20070320
  2. SUBOXONE [Suspect]
     Route: 060
     Dates: start: 20070321, end: 20070325
  3. SUBOXONE [Suspect]
     Route: 060
     Dates: start: 20070331
  4. GEODON [Concomitant]
     Indication: BACK PAIN
     Dosage: PATIENT TAKES AT BEDTIME.
     Route: 048
     Dates: start: 20070317
  5. GEODON [Concomitant]
     Dosage: PATIENT TAKES AT BEDTIME.
     Route: 048
     Dates: start: 20070317
  6. MEVACOR [Concomitant]
     Route: 048
     Dates: start: 20070302
  7. EFFEXOR XR [Concomitant]
     Indication: DEPRESSION
     Route: 048
  8. CHANTIX [Concomitant]
     Indication: SMOKING CESSATION THERAPY
     Route: 048
     Dates: start: 20070307
  9. PROPRANOLOL [Concomitant]
     Indication: HYPERTENSION
     Route: 048
  10. ALDACTAZIDE [Concomitant]
     Indication: HYPERTENSION
     Route: 048
  11. OXYCODONE HCL [Concomitant]
     Dosage: DOSAGE TAKEN UNKNOWN.
     Route: 048
     Dates: start: 20070325, end: 20070330
  12. SOLU-MEDROL [Concomitant]
     Dosage: VARIOUS DOSAGES GIVEN DURING HOSPITALIZATION.
     Route: 042
     Dates: start: 20070325, end: 20070329
  13. CEFTIN [Concomitant]
     Indication: WHITE BLOOD CELL COUNT INCREASED
     Route: 048
     Dates: start: 20070331
  14. PREDNISONE TAB [Concomitant]
     Dosage: VARIOUS DOSES (EXACT UNKNOWN) TAKEN AS SHE IS CURRENTLY TAPERING DOWN OFF OF PREDNISONE.
     Route: 048
     Dates: start: 20070330
  15. ROCEPHIN [Concomitant]
     Indication: WHITE BLOOD CELL COUNT INCREASED
     Route: 042
     Dates: start: 20070325, end: 20070330
  16. ALBUTEROL [Concomitant]
     Route: 055
     Dates: start: 20070325

REACTIONS (6)
  - DYSPNOEA [None]
  - HEADACHE [None]
  - HYPERHIDROSIS [None]
  - IRRITABILITY [None]
  - URINE ABNORMALITY [None]
  - WHITE BLOOD CELL COUNT INCREASED [None]
